FAERS Safety Report 5807371-X (Version None)
Quarter: 2008Q3

REPORT INFORMATION
  Report Type: 
  Country: None (occurrence: None)
  Receive Date: 20080711
  Receipt Date: 20080701
  Transmission Date: 20090109
  Serious: Yes (Other)
  Sender: FDA-Public Use
  Company Number: FR-JNJFOC-20051202990

PATIENT
  Age: 50 Year
  Sex: Female

DRUGS (1)
  1. INFLIXIMAB [Suspect]
     Indication: RHEUMATOID ARTHRITIS
     Dosage: 22 MONTHS
     Route: 042

REACTIONS (2)
  - ANTINUCLEAR ANTIBODY POSITIVE [None]
  - CUTANEOUS LUPUS ERYTHEMATOSUS [None]
